FAERS Safety Report 14643999 (Version 1)
Quarter: 2018Q1

REPORT INFORMATION
  Report Type: Spontaneous
  Country: US (occurrence: US)
  Receive Date: 20180315
  Receipt Date: 20180315
  Transmission Date: 20180509
  Serious: No
  Sender: FDA-Public Use
  Company Number: US-ALLERGAN-1801253US

PATIENT
  Age: 56 Year
  Sex: Female

DRUGS (3)
  1. EPIDUO [Concomitant]
     Active Substance: ADAPALENE\BENZOYL PEROXIDE
     Dosage: UNK
     Route: 065
  2. TAZORAC [Concomitant]
     Active Substance: TAZAROTENE
     Indication: ACNE
     Dosage: UNK UNK, QHS
     Route: 065
  3. ACZONE [Suspect]
     Active Substance: DAPSONE
     Indication: ACNE
     Dosage: ONCE DAILY IN THE MORNING SPOT TREATED AT NIGHT PRN
     Route: 061

REACTIONS (1)
  - Drug ineffective [Unknown]
